FAERS Safety Report 24320575 (Version 1)
Quarter: 2024Q3

REPORT INFORMATION
  Report Type: Report from Study
  Country: CA (occurrence: CA)
  Receive Date: 20240915
  Receipt Date: 20240915
  Transmission Date: 20241016
  Serious: Yes (Other)
  Sender: ABBVIE
  Company Number: CA-ABBVIE-5921958

PATIENT
  Sex: Female

DRUGS (2)
  1. RINVOQ [Suspect]
     Active Substance: UPADACITINIB
     Indication: Psoriatic arthropathy
     Dosage: FORM STRENGTH: 15 MILLIGRAM
     Route: 048
  2. ADVIL [Concomitant]
     Active Substance: IBUPROFEN\IBUPROFEN SODIUM
     Indication: Product used for unknown indication
     Route: 065

REACTIONS (2)
  - Gastritis haemorrhagic [Unknown]
  - Dyspepsia [Unknown]

NARRATIVE: CASE EVENT DATE: 20240101
